FAERS Safety Report 24375244 (Version 1)
Quarter: 2024Q3

REPORT INFORMATION
  Report Type: Spontaneous
  Country: ES (occurrence: ES)
  Receive Date: 20240928
  Receipt Date: 20240928
  Transmission Date: 20241016
  Serious: Yes (Hospitalization, Other)
  Sender: AUROBINDO
  Company Number: ES-AEMPS-1570715

PATIENT
  Age: 32 Year
  Sex: Male

DRUGS (2)
  1. VALPROATE SODIUM [Suspect]
     Active Substance: VALPROATE SODIUM
     Indication: Lennox-Gastaut syndrome
     Dosage: UNK (DURING THE ADMISSION ON 06/05/2024, A DESCENDING PATTERN WAS CARRIED OUT TO SUSPEND IT)
     Dates: start: 2011, end: 202406
  2. PHENYTOIN [Suspect]
     Active Substance: PHENYTOIN
     Indication: Lennox-Gastaut syndrome
     Dosage: UNK (GRADUAL WITHDRAWAL OF THE DOSE)
     Dates: start: 2011, end: 20240913

REACTIONS (1)
  - Hepatitis cholestatic [Not Recovered/Not Resolved]

NARRATIVE: CASE EVENT DATE: 20240508
